FAERS Safety Report 22116346 (Version 1)
Quarter: 2023Q1

REPORT INFORMATION
  Report Type: Spontaneous
  Country: US (occurrence: US)
  Receive Date: 20230320
  Receipt Date: 20230320
  Transmission Date: 20230418
  Serious: No
  Sender: FDA-Public Use
  Company Number: US-SA-SAC20230314001478

PATIENT
  Age: 58 Year
  Sex: Female

DRUGS (12)
  1. DUPIXENT [Suspect]
     Active Substance: DUPILUMAB
     Indication: Dermatitis atopic
     Dosage: 300 MG, QOW
     Route: 058
     Dates: start: 20220811
  2. ADVAIR HFA [Concomitant]
     Active Substance: FLUTICASONE PROPIONATE\SALMETEROL XINAFOATE
  3. ALBUTEROL SULFATE [Concomitant]
     Active Substance: ALBUTEROL SULFATE
  4. CHLORHEXIDINE GLUCONATE [Concomitant]
     Active Substance: CHLORHEXIDINE GLUCONATE
  5. FLUTICASONE [Concomitant]
     Active Substance: FLUTICASONE
  6. IBUPROFEN [Concomitant]
     Active Substance: IBUPROFEN
  7. METHOTREXATE [Concomitant]
     Active Substance: METHOTREXATE
     Dosage: 25MG
  8. PIMECROLIMUS [Concomitant]
     Active Substance: PIMECROLIMUS
  9. PREDNISONE [Concomitant]
     Active Substance: PREDNISONE
  10. TRIAMCINOLONE [Concomitant]
     Active Substance: TRIAMCINOLONE
  11. HYDROCORTISONE ACETATE [Concomitant]
     Active Substance: HYDROCORTISONE ACETATE
  12. ADVAIR HFA [Concomitant]
     Active Substance: FLUTICASONE PROPIONATE\SALMETEROL XINAFOATE

REACTIONS (5)
  - Dermatitis atopic [Unknown]
  - Rash [Unknown]
  - Discomfort [Unknown]
  - Drug ineffective [Unknown]
  - Impaired quality of life [Unknown]
